FAERS Safety Report 9208678 (Version 1)
Quarter: 2013Q2

REPORT INFORMATION
  Report Type: Spontaneous
  Country: JP (occurrence: JP)
  Receive Date: 20130404
  Receipt Date: 20130404
  Transmission Date: 20140414
  Serious: Yes (Other)
  Sender: FDA-Public Use
  Company Number: JP-ACCORD-017063

PATIENT
  Age: 72 Year
  Sex: Male

DRUGS (2)
  1. PACLITAXEL [Suspect]
     Indication: SQUAMOUS CELL CARCINOMA
     Dosage: WEEKLY
  2. CARBOPLATIN [Suspect]
     Indication: SQUAMOUS CELL CARCINOMA
     Dosage: AUC 2, WEEKLY

REACTIONS (2)
  - Cellulitis [Recovering/Resolving]
  - Off label use [Unknown]
